FAERS Safety Report 16647179 (Version 2)
Quarter: 2019Q3

REPORT INFORMATION
  Report Type: Spontaneous
  Country: US (occurrence: US)
  Receive Date: 20190730
  Receipt Date: 20190826
  Transmission Date: 20191004
  Serious: No
  Sender: FDA-Public Use
  Company Number: US-009507513-1907USA011506

PATIENT

DRUGS (1)
  1. ASMANEX [Suspect]
     Active Substance: MOMETASONE FUROATE
     Dosage: 2 PUFFS, TWICE A DAY
     Dates: start: 20190717

REACTIONS (4)
  - Poor quality device used [Unknown]
  - Product quality issue [Unknown]
  - Circumstance or information capable of leading to device use error [Unknown]
  - No adverse event [Unknown]

NARRATIVE: CASE EVENT DATE: 20190717
